FAERS Safety Report 13763634 (Version 3)
Quarter: 2017Q4

REPORT INFORMATION
  Report Type: Spontaneous
  Country: KR (occurrence: KR)
  Receive Date: 20170718
  Receipt Date: 20171002
  Transmission Date: 20180320
  Serious: Yes (Other)
  Sender: FDA-Public Use
  Company Number: KR-009507513-1707KOR004097

PATIENT
  Age: 34 Year
  Sex: Male
  Weight: 70.5 kg

DRUGS (11)
  1. IRCODON [Concomitant]
     Active Substance: OXYCODONE HYDROCHLORIDE
     Indication: MUSCULOSKELETAL PAIN
  2. NOXAFIL [Suspect]
     Active Substance: POSACONAZOLE
     Dosage: 300 MG, ONCE DAILY
     Route: 048
     Dates: start: 20170219, end: 20170226
  3. ENTECAVIR. [Concomitant]
     Active Substance: ENTECAVIR
     Indication: HEPATITIS B
     Dosage: 0.5 MG (1 TABLET), ONCE DAILY (QD)
     Route: 048
  4. IRCODON [Concomitant]
     Active Substance: OXYCODONE HYDROCHLORIDE
     Indication: CHEST PAIN
     Dosage: 5 MG (1 TABLET), ONCE DAILY (QD)
     Route: 048
     Dates: start: 20170215, end: 20170217
  5. NOXAFIL [Suspect]
     Active Substance: POSACONAZOLE
     Indication: ANTIFUNGAL PROPHYLAXIS
     Dosage: 300 MG, TWICE A DAY
     Route: 048
     Dates: start: 20170218, end: 20170218
  6. SEPTRIN [Concomitant]
     Active Substance: SULFAMETHOXAZOLE\TRIMETHOPRIM
     Indication: INFECTION PROPHYLAXIS
     Dosage: 1 TABLET, ONCE DAILY (QD)
     Route: 048
     Dates: start: 20170216
  7. LINBACTAM [Concomitant]
     Indication: PYREXIA
     Dosage: 4.5 G, QID
     Route: 042
     Dates: start: 20170217, end: 20170223
  8. LEUCOSTIM [Concomitant]
     Active Substance: FILGRASTIM
     Indication: PROPHYLAXIS
     Dosage: 450 MG, ONCE DAILY (QD)
     Route: 058
     Dates: start: 20170217, end: 20170221
  9. LEGALON [Concomitant]
     Active Substance: DIETARY SUPPLEMENT\HERBALS\MILK THISTLE
     Indication: LIVER FUNCTION TEST ABNORMAL
     Dosage: 1 CAPSULE, (TWICE A DAY) BID
     Route: 048
  10. IRCODON [Concomitant]
     Active Substance: OXYCODONE HYDROCHLORIDE
     Indication: ABDOMINAL PAIN
  11. URSA TABLETS [Concomitant]
     Indication: LIVER FUNCTION TEST ABNORMAL
     Dosage: 200 MG (1 TABLET), THREE TIMES DAY (TID)
     Route: 048

REACTIONS (4)
  - Epistaxis [Recovered/Resolved]
  - Rhinalgia [Recovered/Resolved]
  - Febrile neutropenia [Recovered/Resolved]
  - Muscular weakness [Recovered/Resolved]

NARRATIVE: CASE EVENT DATE: 20170221
